FAERS Safety Report 20693437 (Version 3)
Quarter: 2022Q3

REPORT INFORMATION
  Report Type: Spontaneous
  Country: US (occurrence: US)
  Receive Date: 20220410
  Receipt Date: 20220826
  Transmission Date: 20221027
  Serious: Yes (Other)
  Sender: FDA-Public Use
  Company Number: US-JNJFOC-20220411722

PATIENT
  Age: 94 Year
  Sex: Male

DRUGS (1)
  1. ELMIRON [Suspect]
     Active Substance: PENTOSAN POLYSULFATE SODIUM
     Indication: Cystitis interstitial
     Route: 048
     Dates: start: 2014, end: 2019

REACTIONS (7)
  - Dry age-related macular degeneration [Not Recovered/Not Resolved]
  - Glaucoma [Unknown]
  - Ophthalmic herpes simplex [Unknown]
  - Corneal dystrophy [Unknown]
  - Dry eye [Unknown]
  - Corneal scar [Unknown]
  - Vitreous floaters [Unknown]

NARRATIVE: CASE EVENT DATE: 20200213
